FAERS Safety Report 7110778-4 (Version None)
Quarter: 2010Q4

REPORT INFORMATION
  Report Type: 
  Country: None (occurrence: None)
  Receive Date: 20101118
  Receipt Date: 20101116
  Transmission Date: 20110411
  Serious: Yes (Other)
  Sender: FDA-Public Use
  Company Number: Z0002843B

PATIENT
  Sex: Female
  Weight: 60 kg

DRUGS (2)
  1. PAZOPANIB [Suspect]
     Indication: OVARIAN CANCER
     Dosage: 800MG PER DAY
     Route: 048
     Dates: start: 20091123
  2. SYNTHROID [Concomitant]

REACTIONS (1)
  - INTESTINAL FISTULA [None]
